FAERS Safety Report 8457717-1 (Version None)
Quarter: 2012Q2

REPORT INFORMATION
  Report Type: 
  Country: None (occurrence: None)
  Receive Date: 20120618
  Receipt Date: 20120618
  Transmission Date: 20120825
  Serious: Yes (Disabling)
  Sender: FDA-Public Use
  Company Number: None

PATIENT
  Age: 48 Year
  Sex: Male
  Weight: 81.6475 kg

DRUGS (1)
  1. FINASTERIDE [Suspect]
     Indication: ALOPECIA
     Dosage: 2.5 MG DAILY PO
     Route: 048
     Dates: start: 20120114, end: 20120214

REACTIONS (3)
  - LOSS OF LIBIDO [None]
  - ANORGASMIA [None]
  - EJACULATION DISORDER [None]
